FAERS Safety Report 25055361 (Version 2)
Quarter: 2025Q1

REPORT INFORMATION
  Report Type: Report from Study
  Country: DE (occurrence: DE)
  Receive Date: 20250308
  Receipt Date: 20250315
  Transmission Date: 20250409
  Serious: Yes (Death, Other)
  Sender: UNITED THERAPEUTICS
  Company Number: DE-UNITED THERAPEUTICS-UNT-2025-008052

PATIENT
  Age: 70 Year

DRUGS (2)
  1. TREPROSTINIL SODIUM [Suspect]
     Active Substance: TREPROSTINIL SODIUM
     Indication: Pulmonary hypertension
     Dosage: 72 ?G, QID
  2. TREPROSTINIL SODIUM [Suspect]
     Active Substance: TREPROSTINIL SODIUM
     Indication: Interstitial lung disease

REACTIONS (3)
  - Death [Fatal]
  - Interstitial lung disease [Unknown]
  - Off label use [Recovered/Resolved]
